FAERS Safety Report 4523164-8 (Version None)
Quarter: 2004Q4

REPORT INFORMATION
  Report Type: 
  Country: None (occurrence: None)
  Receive Date: 20041210
  Receipt Date: 20041201
  Transmission Date: 20050328
  Serious: Yes (Other)
  Sender: FDA-Public Use
  Company Number: FR-JNJFOC-20041200355

PATIENT
  Age: 14 Year
  Sex: Female

DRUGS (1)
  1. RISPERDAL [Suspect]
     Indication: ANOREXIA
     Route: 049

REACTIONS (3)
  - LEUKOPENIA [None]
  - LUNG INFECTION [None]
  - NEUTROPENIA [None]
